FAERS Safety Report 6033272-0 (Version None)
Quarter: 2009Q1

REPORT INFORMATION
  Report Type: 
  Country: None (occurrence: None)
  Receive Date: 20090109
  Receipt Date: 20090102
  Transmission Date: 20090719
  Serious: Yes (Hospitalization, Other)
  Sender: FDA-Public Use
  Company Number: US-JNJCH-2009000392

PATIENT
  Age: 53 Year
  Sex: Male
  Weight: 156.5 kg

DRUGS (11)
  1. LUBRIDERM DAILY MOISTURE FRAGRANCE FREE [Suspect]
     Indication: DRY SKIN
     Dosage: TEXT:TWO OR THREE PUMPS ONCE DAILY
     Route: 061
     Dates: start: 20081101, end: 20081231
  2. LANTUS [Concomitant]
     Indication: DIABETES MELLITUS
     Dosage: TEXT:47 UNITS A DAY
     Route: 065
  3. AMLODIPINE BESILATE [Concomitant]
     Indication: BLOOD PRESSURE
     Dosage: TEXT:5 MG 1 PER DAY
     Route: 065
  4. LISINOPRIL AND HYDROCHLOROTHIAZIDE [Concomitant]
     Indication: BLOOD CHOLESTEROL
     Dosage: TEXT:20/12.5 TAB 2 ONCE PER DAY
     Route: 065
  5. ATENOLOL [Concomitant]
     Indication: DRUG USE FOR UNKNOWN INDICATION
     Dosage: TEXT:100 MG 1 PER DAY
     Route: 065
  6. GLYBURIDE [Concomitant]
     Indication: DRUG USE FOR UNKNOWN INDICATION
     Dosage: TEXT:5 MG 2 ONCE PER DAY
     Route: 065
  7. LYRICA [Concomitant]
     Indication: PAIN
     Dosage: TEXT:75 MG 2 PER DAY
     Route: 065
  8. DIAZEPAM [Concomitant]
     Indication: PAIN
     Dosage: TEXT:10 MG 1 PER DAY
     Route: 065
  9. FENTANYL-100 [Concomitant]
     Indication: PAIN
     Dosage: TEXT:100 MCG/HR  PATCH/ 72 HOURS
     Route: 065
  10. MORPHINE SULFATE [Concomitant]
     Indication: PAIN
     Dosage: TEXT:15 MG / CONTROLLED 2 PER DAY
     Route: 065
  11. MORPHINE SULFATE [Concomitant]
     Indication: BREAKTHROUGH PAIN
     Dosage: TEXT:15 MG / INSTANT EVERY 6 HOURS
     Route: 065

REACTIONS (5)
  - APPLICATION SITE ERYTHEMA [None]
  - APPLICATION SITE PUSTULES [None]
  - PRODUCT TAMPERING [None]
  - PRURITUS [None]
  - RASH [None]
